FAERS Safety Report 26051193 (Version 1)
Quarter: 2025Q4

REPORT INFORMATION
  Report Type: Spontaneous
  Country: CN (occurrence: CN)
  Receive Date: 20251117
  Receipt Date: 20251117
  Transmission Date: 20260117
  Serious: Yes (Hospitalization, Other)
  Sender: SANOFI AVENTIS
  Company Number: CN-SA-2025SA338833

PATIENT
  Age: 74 Year
  Sex: Male
  Weight: 75 kg

DRUGS (8)
  1. DUPILUMAB [Suspect]
     Active Substance: DUPILUMAB
     Indication: Upper respiratory tract infection
     Dosage: 300 MG, 1X
     Route: 058
     Dates: start: 20251010, end: 20251010
  2. DUPILUMAB [Suspect]
     Active Substance: DUPILUMAB
     Indication: End stage renal disease
     Dosage: 300 MG, 1X
     Route: 058
     Dates: start: 20251022, end: 20251022
  3. PREGABALIN [Suspect]
     Active Substance: PREGABALIN
     Indication: Upper respiratory tract infection
     Dosage: 75 MG, TIW
     Route: 048
     Dates: start: 20251019, end: 20251031
  4. PREGABALIN [Suspect]
     Active Substance: PREGABALIN
     Indication: End stage renal disease
  5. AMINOPHYLLINE\CHLORPHENIRAMINE MALEATE\METHOXYPHENAMINE HYDROCHLORIDE\ [Suspect]
     Active Substance: AMINOPHYLLINE\CHLORPHENIRAMINE MALEATE\METHOXYPHENAMINE HYDROCHLORIDE\NOSCAPINE
     Indication: Upper respiratory tract infection
     Dosage: 2 DF, TID
     Route: 048
     Dates: start: 20251026, end: 20251031
  6. AMINOPHYLLINE\CHLORPHENIRAMINE MALEATE\METHOXYPHENAMINE HYDROCHLORIDE\ [Suspect]
     Active Substance: AMINOPHYLLINE\CHLORPHENIRAMINE MALEATE\METHOXYPHENAMINE HYDROCHLORIDE\NOSCAPINE
     Indication: End stage renal disease
  7. NAFAMOSTAT MESYLATE [Suspect]
     Active Substance: NAFAMOSTAT MESYLATE
     Indication: Upper respiratory tract infection
     Dosage: 100 MG, ONCE EVERY 2 DAYS, PUMP INJECTION
     Route: 065
     Dates: start: 20251003, end: 20251025
  8. NAFAMOSTAT MESYLATE [Suspect]
     Active Substance: NAFAMOSTAT MESYLATE
     Indication: End stage renal disease

REACTIONS (2)
  - Platelet count decreased [Unknown]
  - Product use in unapproved indication [Unknown]

NARRATIVE: CASE EVENT DATE: 20251010
